FAERS Safety Report 17186832 (Version 1)
Quarter: 2019Q4

REPORT INFORMATION
  Report Type: Spontaneous
  Country: US (occurrence: US)
  Receive Date: 20191220
  Receipt Date: 20191220
  Transmission Date: 20200122
  Serious: No
  Sender: FDA-Public Use
  Company Number: NVSC2019US074302

PATIENT
  Sex: Male

DRUGS (1)
  1. BEOVU [Suspect]
     Active Substance: BROLUCIZUMAB-DBLL
     Indication: RETINAL VEIN OCCLUSION
     Dosage: 6 MG, ONCE/SINGLE
     Route: 047

REACTIONS (1)
  - Intraocular pressure decreased [Unknown]
